FAERS Safety Report 18631986 (Version 1)
Quarter: 2020Q4

REPORT INFORMATION
  Report Type: Spontaneous
  Country: US (occurrence: US)
  Receive Date: 20201218
  Receipt Date: 20201218
  Transmission Date: 20210114
  Serious: No
  Sender: FDA-Public Use
  Company Number: US-SPECGX-T202000991

PATIENT
  Sex: Male
  Weight: 147 kg

DRUGS (2)
  1. FENTANYL TRANSDERMAL SYSTEM [Suspect]
     Active Substance: FENTANYL
     Indication: PAIN
     Dosage: UNK, AT EVERY 72 HOURS
     Route: 062
  2. FENTANYL TRANSDERMAL SYSTEM [Suspect]
     Active Substance: FENTANYL
     Dosage: UNK (TWO PATCH OF 25 MCG/HOUR AT THE SAME TIME)
     Route: 062

REACTIONS (6)
  - Application site pruritus [Unknown]
  - Drug ineffective [Unknown]
  - Application site irritation [Unknown]
  - Product adhesion issue [Unknown]
  - Application site pain [Unknown]
  - Application site rash [Unknown]
